FAERS Safety Report 7731523-5 (Version None)
Quarter: 2011Q3

REPORT INFORMATION
  Report Type: 
  Country: None (occurrence: None)
  Receive Date: 20110906
  Receipt Date: 20110609
  Transmission Date: 20111222
  Serious: No
  Sender: FDA-Public Use
  Company Number: US-AMGEN-USASP2011029673

PATIENT
  Age: 92 Year
  Sex: Female

DRUGS (2)
  1. PROLIA [Suspect]
     Indication: OSTEOPOROSIS POSTMENOPAUSAL
  2. ANTIHYPERTENSIVES [Concomitant]

REACTIONS (8)
  - PAIN [None]
  - ERUCTATION [None]
  - MALAISE [None]
  - MUSCULOSKELETAL CHEST PAIN [None]
  - FLATULENCE [None]
  - ABDOMINAL DISCOMFORT [None]
  - HEADACHE [None]
  - ABDOMINAL PAIN UPPER [None]
